FAERS Safety Report 4523864-X (Version None)
Quarter: 2004Q4

REPORT INFORMATION
  Report Type: 
  Country: None (occurrence: None)
  Receive Date: 20041210
  Receipt Date: 20041129
  Transmission Date: 20050328
  Serious: Yes (Hospitalization)
  Sender: FDA-Public Use
  Company Number: PHBS2004MX16229

PATIENT
  Age: 54 Year
  Sex: Female

DRUGS (6)
  1. OMEPRAZOLE [Concomitant]
  2. CISAPRIDE [Concomitant]
  3. DOMPERIDONE [Concomitant]
  4. METROCLOPRAMIDE [Concomitant]
  5. ZELMAC [Suspect]
     Indication: GASTROINTESTINAL DISORDER
     Dosage: 12 MG/DAY
     Route: 048
     Dates: end: 20041121
  6. ZELMAC [Suspect]
     Dosage: 6 MG/DAY
     Route: 048
     Dates: start: 20041121

REACTIONS (1)
  - INTESTINAL OBSTRUCTION [None]
